FAERS Safety Report 15883629 (Version 1)
Quarter: 2019Q1

REPORT INFORMATION
  Report Type: Spontaneous
  Country: US (occurrence: US)
  Receive Date: 20190128
  Receipt Date: 20190128
  Transmission Date: 20190417
  Serious: No
  Sender: FDA-Public Use
  Company Number: None

PATIENT
  Age: 36 Year
  Sex: Female

DRUGS (6)
  1. FLONASE [Concomitant]
     Active Substance: FLUTICASONE PROPIONATE
  2. MULTI VITAMIN D [Concomitant]
  3. FERROUS SULFATE (IRON PILLS) [Concomitant]
  4. VENLAFAXINE HCL [Concomitant]
     Active Substance: VENLAFAXINE HYDROCHLORIDE
  5. APPLE CIDER VINEGAR [Concomitant]
     Active Substance: APPLE CIDER VINEGAR
  6. SULFAMETHOXAZOLE AND TRIMETHOPRIM TABLETS USP 400/80 MG [Suspect]
     Active Substance: SULFAMETHOXAZOLE\TRIMETHOPRIM
     Indication: URINARY TRACT INFECTION
     Dosage: ?          QUANTITY:1 TABLET(S);?
     Route: 048

REACTIONS (6)
  - Eye irritation [None]
  - Pyrexia [None]
  - Muscle spasms [None]
  - Insomnia [None]
  - Sensory disturbance [None]
  - Ocular hyperaemia [None]

NARRATIVE: CASE EVENT DATE: 20190127
